FAERS Safety Report 5641054-4 (Version None)
Quarter: 2008Q1

REPORT INFORMATION
  Report Type: 
  Country: None (occurrence: None)
  Receive Date: 20080227
  Receipt Date: 20080218
  Transmission Date: 20080703
  Serious: Yes (Other)
  Sender: FDA-Public Use
  Company Number: DE-ABBOTT-08P-062-0434737-00

PATIENT
  Sex: Female
  Weight: 43.6 kg

DRUGS (2)
  1. HUMIRA [Suspect]
     Indication: JUVENILE ARTHRITIS
     Route: 058
     Dates: start: 20040302, end: 20060119
  2. HUMIRA [Suspect]
     Route: 058
     Dates: start: 20060130, end: 20070409

REACTIONS (1)
  - DIABETES MELLITUS [None]
